FAERS Safety Report 23438995 (Version 1)
Quarter: 2024Q1

REPORT INFORMATION
  Report Type: Spontaneous
  Country: CN (occurrence: CN)
  Receive Date: 20240124
  Receipt Date: 20240124
  Transmission Date: 20240409
  Serious: Yes (Other)
  Sender: FDA-Public Use
  Company Number: CN-MYLANLABS-2024M1007214

PATIENT
  Age: 14 Year
  Sex: Male
  Weight: 45 kg

DRUGS (2)
  1. CELEBREX [Suspect]
     Active Substance: CELECOXIB
     Indication: Ligament sprain
     Dosage: 0.2 GRAM, QD
     Route: 048
     Dates: start: 20240112, end: 20240113
  2. HERBALS [Suspect]
     Active Substance: HERBALS
     Indication: Ligament sprain
     Dosage: 1.35 GRAM, BID
     Route: 048
     Dates: start: 20240112, end: 20240113

REACTIONS (2)
  - Erythema [Recovering/Resolving]
  - Pruritus [Recovering/Resolving]

NARRATIVE: CASE EVENT DATE: 20240112
